FAERS Safety Report 15386944 (Version 2)
Quarter: 2018Q4

REPORT INFORMATION
  Report Type: Spontaneous
  Country: GB (occurrence: GB)
  Receive Date: 20180914
  Receipt Date: 20181016
  Transmission Date: 20190204
  Serious: Yes (Death, Other)
  Sender: FDA-Public Use
  Company Number: GB-SAKK-2018SA256604AA

PATIENT
  Age: 74 Year
  Sex: Male

DRUGS (6)
  1. TAMSULOSIN [Concomitant]
     Active Substance: TAMSULOSIN
  2. LEVOTHYROXINE SODIUM. [Concomitant]
     Active Substance: LEVOTHYROXINE SODIUM
  3. ATORVASTATIN [Concomitant]
     Active Substance: ATORVASTATIN
  4. FINASTERIDE. [Concomitant]
     Active Substance: FINASTERIDE
  5. VANDETANIB. [Suspect]
     Active Substance: VANDETANIB
     Indication: MEDULLARY THYROID CANCER
     Route: 048
     Dates: start: 20180725, end: 20180729
  6. DIGOXIN. [Concomitant]
     Active Substance: DIGOXIN

REACTIONS (1)
  - Sudden death [Fatal]

NARRATIVE: CASE EVENT DATE: 20180729
